FAERS Safety Report 24111953 (Version 1)
Quarter: 2024Q3

REPORT INFORMATION
  Report Type: Spontaneous
  Country: AU (occurrence: AU)
  Receive Date: 20240718
  Receipt Date: 20240718
  Transmission Date: 20241017
  Serious: Yes (Life-Threatening, Hospitalization, Other)
  Sender: CIPLA
  Company Number: AU-CIPLA LTD.-2024AU07602

PATIENT

DRUGS (6)
  1. AZACITIDINE [Suspect]
     Active Substance: AZACITIDINE
     Indication: Myelodysplastic syndrome
     Dosage: 150 MILLIGRAM, QD, INJECTION
     Route: 058
     Dates: start: 20230417, end: 20231128
  2. AZACITIDINE [Suspect]
     Active Substance: AZACITIDINE
     Dosage: 150 MILLIGRAM, QD, INJECTION
     Route: 058
     Dates: start: 20240102, end: 20240205
  3. AZACITIDINE [Suspect]
     Active Substance: AZACITIDINE
     Dosage: 150 MILLIGRAM, QD, INJECTION
     Route: 058
     Dates: start: 2024, end: 20240507
  4. LISAFTOCLAX [Suspect]
     Active Substance: LISAFTOCLAX
     Indication: Myelodysplastic syndrome
     Dosage: 800 MILLIGRAM, QD
     Route: 048
     Dates: start: 20230413, end: 20231203
  5. LISAFTOCLAX [Suspect]
     Active Substance: LISAFTOCLAX
     Dosage: 800 MILLIGRAM, QD
     Route: 048
     Dates: start: 20240102, end: 20240205
  6. LISAFTOCLAX [Suspect]
     Active Substance: LISAFTOCLAX
     Dosage: 800 MILLIGRAM, QD
     Route: 048
     Dates: start: 2024, end: 20240512

REACTIONS (1)
  - Colitis [Unknown]

NARRATIVE: CASE EVENT DATE: 20240521
